FAERS Safety Report 6880258-X (Version None)
Quarter: 2010Q3

REPORT INFORMATION
  Report Type: 
  Country: None (occurrence: None)
  Receive Date: 20100728
  Receipt Date: 20100714
  Transmission Date: 20110219
  Serious: Yes (Other)
  Sender: FDA-Public Use
  Company Number: US-PFIZER INC-2010089005

PATIENT
  Sex: Female
  Weight: 87 kg

DRUGS (5)
  1. CHANTIX [Suspect]
     Indication: SMOKING CESSATION THERAPY
     Dosage: 0.5 MG, 1X/DAY
     Route: 048
     Dates: start: 20100701
  2. CHANTIX [Suspect]
     Dosage: 1 MG, 2X/DAY
     Route: 048
     Dates: start: 20100701
  3. EFFEXOR [Concomitant]
     Indication: ANTIDEPRESSANT THERAPY
     Dosage: 150 MG, 1X/DAY
     Route: 048
  4. ABILIFY [Concomitant]
     Indication: ANTIDEPRESSANT THERAPY
     Dosage: 15 MG, 1X/DAY
     Route: 048
  5. TOPAMAX [Concomitant]
     Indication: ANTIDEPRESSANT THERAPY
     Dosage: 100 MG, 1X/DAY
     Route: 048

REACTIONS (1)
  - CONFUSIONAL STATE [None]
